FAERS Safety Report 4625987-3 (Version None)
Quarter: 2005Q1

REPORT INFORMATION
  Report Type: 
  Country: None (occurrence: None)
  Receive Date: 20050330
  Receipt Date: 20050314
  Transmission Date: 20050727
  Serious: Yes (Other)
  Sender: FDA-Public Use
  Company Number: USA050393177

PATIENT
  Age: 44 Year
  Sex: Female

DRUGS (2)
  1. PROZAC [Suspect]
     Indication: DEPRESSION
     Dosage: 20 MG DAY
     Dates: start: 19910101
  2. STRATTERA [Suspect]
     Indication: ATTENTION DEFICIT/HYPERACTIVITY DISORDER
     Dosage: 25 MG DAY

REACTIONS (5)
  - BRAIN OPERATION [None]
  - HEADACHE [None]
  - HYSTERECTOMY [None]
  - MEMORY IMPAIRMENT [None]
  - PERITONITIS [None]
